FAERS Safety Report 9465793 (Version 3)
Quarter: 2013Q3

REPORT INFORMATION
  Report Type: Spontaneous
  Country: FR (occurrence: FR)
  Receive Date: 20130820
  Receipt Date: 20130916
  Transmission Date: 20140515
  Serious: Yes (Hospitalization)
  Sender: FDA-Public Use
  Company Number: FR-PFIZER INC-2013236160

PATIENT
  Age: 82 Year
  Sex: Male

DRUGS (6)
  1. TAHOR [Suspect]
     Dosage: 10 MG, DAILY
     Route: 048
  2. CORDARONE [Interacting]
     Dosage: 200 MG, DAILY
     Route: 048
     Dates: start: 20130228
  3. PRADAXA [Interacting]
     Dosage: 110 MG, 2X/DAY
     Route: 048
     Dates: start: 20130522, end: 20130525
  4. FORTZAAR [Interacting]
     Dosage: 1 DF, DAILY
     Route: 048
  5. KARDEGIC [Interacting]
     Dosage: 75 MG, DAILY
     Route: 048
  6. DIGOXINE NATIVELLE [Concomitant]
     Dosage: UNK

REACTIONS (3)
  - Drug interaction [Unknown]
  - Rectal haemorrhage [Recovered/Resolved]
  - Melaena [Recovered/Resolved]
